FAERS Safety Report 14531001 (Version 1)
Quarter: 2018Q1

REPORT INFORMATION
  Report Type: Spontaneous
  Country: US (occurrence: US)
  Receive Date: 20180214
  Receipt Date: 20180214
  Transmission Date: 20180509
  Serious: No
  Sender: FDA-Public Use
  Company Number: US-IPSEN BIOPHARMACEUTICALS, INC.-2017-02319

PATIENT
  Sex: Female

DRUGS (7)
  1. DYSPORT [Suspect]
     Active Substance: ABOBOTULINUMTOXINA
     Dosage: 100 UNITS
     Route: 030
     Dates: start: 20170322, end: 20170322
  2. FENTANYL. [Concomitant]
     Active Substance: FENTANYL
  3. DYSPORT [Suspect]
     Active Substance: ABOBOTULINUMTOXINA
     Indication: SKIN WRINKLING
     Dosage: 45 UNITS
     Route: 065
  4. DYSPORT [Suspect]
     Active Substance: ABOBOTULINUMTOXINA
     Indication: SKIN WRINKLING
     Dosage: 45 UNITS
     Route: 065
  5. DYSPORT [Suspect]
     Active Substance: ABOBOTULINUMTOXINA
     Indication: OFF LABEL USE
     Dosage: 100 UNITS
     Route: 030
     Dates: start: 20170113, end: 20170113
  6. DYSPORT [Suspect]
     Active Substance: ABOBOTULINUMTOXINA
     Dosage: 100 UNITS
     Route: 030
     Dates: start: 20170201, end: 20170201
  7. NORCO [Concomitant]
     Active Substance: ACETAMINOPHEN\HYDROCODONE BITARTRATE

REACTIONS (5)
  - Wrong technique in product usage process [Unknown]
  - Drug ineffective [Unknown]
  - Product quality control issue [Unknown]
  - Off label use [Unknown]
  - Inappropriate schedule of drug administration [Unknown]
